FAERS Safety Report 4867737-1 (Version None)
Quarter: 2005Q4

REPORT INFORMATION
  Report Type: 
  Country: None (occurrence: None)
  Receive Date: 20051222
  Receipt Date: 20051201
  Transmission Date: 20060501
  Serious: Yes (Hospitalization, Other)
  Sender: FDA-Public Use
  Company Number: HQWYE947512DEC05

PATIENT
  Age: 65 Year
  Sex: Male

DRUGS (1)
  1. GEMTUZUMAB OZOGAMACIN (GENTUZUMAB OZOGAMICIN, INJECTION) [Suspect]
     Indication: ACUTE MYELOID LEUKAEMIA
     Dosage: INTRAVENOUS
     Route: 042

REACTIONS (2)
  - HYPOTENSION [None]
  - PYREXIA [None]
